FAERS Safety Report 4391082-4 (Version None)
Quarter: 2004Q3

REPORT INFORMATION
  Report Type: 
  Country: None (occurrence: None)
  Receive Date: 20040701
  Receipt Date: 20040701
  Transmission Date: 20050211
  Serious: No
  Sender: FDA-Public Use
  Company Number: None

PATIENT

DRUGS (1)
  1. HURRICANE SPRAY (BENZOCAINDE) [Suspect]
     Indication: PHARYNGOLARYNGEAL PAIN
     Dates: start: 20040604

REACTIONS (1)
  - ACQUIRED METHAEMOGLOBINAEMIA [None]
